FAERS Safety Report 24269005 (Version 9)
Quarter: 2025Q2

REPORT INFORMATION
  Report Type: Report from Study
  Country: CN (occurrence: CN)
  Receive Date: 20240830
  Receipt Date: 20250613
  Transmission Date: 20250716
  Serious: Yes (Death, Other)
  Sender: ROCHE
  Company Number: CN-ROCHE-3577981

PATIENT
  Age: 77 Year
  Sex: Female
  Weight: 36.8 kg

DRUGS (44)
  1. POLATUZUMAB VEDOTIN [Suspect]
     Active Substance: POLATUZUMAB VEDOTIN
     Indication: Diffuse large B-cell lymphoma
     Route: 042
     Dates: start: 20231222, end: 20231222
  2. POLATUZUMAB VEDOTIN [Suspect]
     Active Substance: POLATUZUMAB VEDOTIN
     Route: 042
     Dates: start: 20240120, end: 20240120
  3. POLATUZUMAB VEDOTIN [Suspect]
     Active Substance: POLATUZUMAB VEDOTIN
     Dosage: FREQUENCY TEXT:ONCE
     Route: 042
     Dates: start: 20240320, end: 20240320
  4. RITUXIMAB [Suspect]
     Active Substance: RITUXIMAB
     Indication: Diffuse large B-cell lymphoma
     Route: 042
     Dates: start: 20231221, end: 20231221
  5. RITUXIMAB [Suspect]
     Active Substance: RITUXIMAB
     Route: 042
     Dates: start: 20240119, end: 20240119
  6. RITUXIMAB [Suspect]
     Active Substance: RITUXIMAB
     Route: 042
     Dates: start: 20240215, end: 20240215
  7. RITUXIMAB [Suspect]
     Active Substance: RITUXIMAB
     Dosage: ONLY ONCE
     Route: 042
     Dates: start: 20240319, end: 20240319
  8. LENALIDOMIDE [Suspect]
     Active Substance: LENALIDOMIDE
     Indication: Diffuse large B-cell lymphoma
     Route: 048
     Dates: start: 20231222, end: 20231231
  9. LENALIDOMIDE [Suspect]
     Active Substance: LENALIDOMIDE
     Route: 048
     Dates: start: 20240120, end: 20240129
  10. LENALIDOMIDE [Suspect]
     Active Substance: LENALIDOMIDE
     Route: 048
     Dates: start: 20240319, end: 20240428
  11. ZANUBRUTINIB [Suspect]
     Active Substance: ZANUBRUTINIB
     Indication: Diffuse large B-cell lymphoma
     Route: 048
     Dates: start: 20240119, end: 20240119
  12. ZANUBRUTINIB [Suspect]
     Active Substance: ZANUBRUTINIB
     Route: 048
     Dates: start: 20231221, end: 20231221
  13. POTASSIUM CHLORIDE [Concomitant]
     Active Substance: POTASSIUM CHLORIDE
     Dates: start: 20240322
  14. RECOMBINANT HUMAN THROMBOPOIETIN [Concomitant]
     Active Substance: RECOMBINANT HUMAN THROMBOPOIETIN
     Dates: start: 20240325
  15. Rabeprazole sodium enteric-coated tablets [Concomitant]
     Route: 048
     Dates: start: 20231224, end: 20240123
  16. Rabeprazole sodium enteric-coated tablets [Concomitant]
     Route: 048
     Dates: start: 20231220, end: 20231223
  17. Rabeprazole sodium enteric-coated tablets [Concomitant]
     Route: 048
     Dates: start: 20240120, end: 20240120
  18. Rabeprazole sodium enteric-coated tablets [Concomitant]
     Route: 048
     Dates: start: 20240121, end: 20240121
  19. ALBUMIN HUMAN [Concomitant]
     Active Substance: ALBUMIN HUMAN
     Route: 042
     Dates: start: 20240321, end: 20240326
  20. ALBUMIN HUMAN [Concomitant]
     Active Substance: ALBUMIN HUMAN
     Route: 042
     Dates: start: 20231220, end: 20231223
  21. ALBUMIN HUMAN [Concomitant]
     Active Substance: ALBUMIN HUMAN
     Route: 042
     Dates: start: 20240319, end: 20240404
  22. Compound acetaminophen tablets [Concomitant]
     Indication: Pyrexia
     Route: 048
     Dates: start: 20231222, end: 20231222
  23. Compound acetaminophen tablets [Concomitant]
     Route: 048
     Dates: start: 20240120, end: 20240120
  24. Compound acetaminophen tablets [Concomitant]
     Route: 048
     Dates: start: 20240320, end: 20240321
  25. Promethazine hydrochloride inj [Concomitant]
     Indication: Hypersensitivity
     Route: 030
     Dates: start: 20231221, end: 20231222
  26. Promethazine hydrochloride inj [Concomitant]
     Route: 030
     Dates: start: 20240120, end: 20240120
  27. Promethazine hydrochloride inj [Concomitant]
     Route: 030
     Dates: start: 20240320, end: 20240320
  28. LIDOCAINE HYDROCHLORIDE [Concomitant]
     Active Substance: LIDOCAINE HYDROCHLORIDE
     Indication: Local anaesthesia
     Route: 058
     Dates: start: 20231219, end: 20231220
  29. CEFACLOR [Concomitant]
     Active Substance: CEFACLOR
     Indication: Infection
     Route: 048
     Dates: start: 20231224
  30. SULFAMETHOXAZOLE [Concomitant]
     Active Substance: SULFAMETHOXAZOLE
     Indication: Infection
     Route: 048
     Dates: start: 20231224
  31. METHYLPREDNISOLONE SODIUM SUCCINATE [Concomitant]
     Active Substance: METHYLPREDNISOLONE SODIUM SUCCINATE
     Indication: Inflammation
     Route: 042
     Dates: start: 20231221, end: 20231221
  32. METHYLPREDNISOLONE SODIUM SUCCINATE [Concomitant]
     Active Substance: METHYLPREDNISOLONE SODIUM SUCCINATE
     Route: 042
     Dates: start: 20240119, end: 20240119
  33. METHYLPREDNISOLONE SODIUM SUCCINATE [Concomitant]
     Active Substance: METHYLPREDNISOLONE SODIUM SUCCINATE
     Route: 042
     Dates: start: 20240215, end: 20240215
  34. METHYLPREDNISOLONE SODIUM SUCCINATE [Concomitant]
     Active Substance: METHYLPREDNISOLONE SODIUM SUCCINATE
     Route: 042
     Dates: start: 20240121
  35. OMEPRAZOLE [Concomitant]
     Active Substance: OMEPRAZOLE
     Indication: Product used for unknown indication
     Route: 048
     Dates: start: 20240215, end: 20240224
  36. Palonosetron hydrochloride capsules [Concomitant]
     Indication: Product used for unknown indication
     Route: 048
     Dates: start: 20240215, end: 20240215
  37. PREDNISONE [Concomitant]
     Active Substance: PREDNISONE
     Indication: Product used for unknown indication
     Route: 048
     Dates: start: 20240215, end: 20240224
  38. ESOMEPRAZOLE SODIUM [Concomitant]
     Active Substance: ESOMEPRAZOLE SODIUM
     Indication: Product used for unknown indication
     Route: 042
     Dates: start: 20240318, end: 20240330
  39. Vitamin B6 inj [Concomitant]
     Indication: Vomiting
     Route: 042
     Dates: start: 20240318, end: 20240318
  40. Potassium chloride injection 10% [Concomitant]
     Route: 042
     Dates: start: 20240318, end: 20240318
  41. Potassium chloride injection 10% [Concomitant]
     Route: 048
     Dates: start: 20240322, end: 20240328
  42. Bifidobacterium triple live capsule [Concomitant]
     Indication: Product used for unknown indication
     Route: 048
     Dates: start: 20240303
  43. LEUCOGEN [Concomitant]
     Active Substance: LEUCOGEN
     Dates: start: 20231221
  44. AMINO ACIDS, SOURCE UNSPECIFIED [Concomitant]
     Active Substance: AMINO ACIDS, SOURCE UNSPECIFIED
     Route: 042
     Dates: start: 20240406, end: 20240410

REACTIONS (4)
  - White blood cell count decreased [Recovered/Resolved]
  - Supraventricular extrasystoles [Not Recovered/Not Resolved]
  - Gastric haemorrhage [Fatal]
  - Shock haemorrhagic [Fatal]

NARRATIVE: CASE EVENT DATE: 20240119
